FAERS Safety Report 8846499 (Version 1)
Quarter: 2012Q4

REPORT INFORMATION
  Report Type: 
  Country: US (occurrence: US)
  Receive Date: 20121017
  Receipt Date: 20121017
  Transmission Date: 20130627
  Serious: No
  Sender: FDA-Public Use
  Company Number: US-GLAXOSMITHKLINE-A0957213A

PATIENT
  Sex: Female

DRUGS (2)
  1. AUGMENTIN [Suspect]
     Indication: PHARYNGITIS STREPTOCOCCAL
     Route: 065
  2. CEFTIN [Suspect]
     Indication: PHARYNGITIS STREPTOCOCCAL
     Route: 065

REACTIONS (1)
  - Drug ineffective [Unknown]
